FAERS Safety Report 26194738 (Version 2)
Quarter: 2025Q4

REPORT INFORMATION
  Report Type: Report from Study
  Country: US (occurrence: US)
  Receive Date: 20251224
  Receipt Date: 20251230
  Transmission Date: 20260117
  Serious: Yes (Other)
  Sender: ABBVIE
  Company Number: US-JNJFOC-20251220527

PATIENT

DRUGS (1)
  1. IBRUTINIB [Suspect]
     Active Substance: IBRUTINIB
     Indication: Chronic graft versus host disease
     Route: 048

REACTIONS (5)
  - Atrial fibrillation [Unknown]
  - Upper respiratory tract infection [Unknown]
  - Myalgia [Unknown]
  - Dyspnoea [Unknown]
  - Toxicity to various agents [Unknown]
